FAERS Safety Report 8548299-4 (Version None)
Quarter: 2012Q3

REPORT INFORMATION
  Report Type: 
  Country: None (occurrence: None)
  Receive Date: 20120730
  Receipt Date: 20120717
  Transmission Date: 20120928
  Serious: No
  Sender: FDA-Public Use
  Company Number: US-JNJFOC-20120709947

PATIENT
  Sex: Male
  Weight: 63.96 kg

DRUGS (3)
  1. PERCOCET [Concomitant]
     Dosage: 7.25/325 MG AS NEEDED
     Route: 048
  2. FENTANYL-100 [Suspect]
     Indication: BACK PAIN
     Route: 062
     Dates: start: 20120601
  3. DURAGESIC-100 [Suspect]
     Indication: BACK PAIN
     Route: 062
     Dates: start: 20120101, end: 20120101

REACTIONS (4)
  - PRODUCT QUALITY ISSUE [None]
  - APPLICATION SITE REACTION [None]
  - APPLICATION SITE IRRITATION [None]
  - WRONG TECHNIQUE IN DRUG USAGE PROCESS [None]
